FAERS Safety Report 9098840 (Version 1)
Quarter: 2013Q1

REPORT INFORMATION
  Report Type: Report from Study
  Country: DE (occurrence: DE)
  Receive Date: 20130214
  Receipt Date: 20130214
  Transmission Date: 20140127
  Serious: Yes (Hospitalization)
  Sender: FDA-Public Use
  Company Number: DE-ABBOTT-13P-062-1048653-00

PATIENT
  Age: 29 Year
  Sex: Male
  Weight: 72 kg

DRUGS (2)
  1. HUMIRA [Suspect]
     Indication: CROHN^S DISEASE
     Route: 058
     Dates: start: 20120131
  2. SYSTEMIC STEROIDS [Concomitant]
     Indication: PRODUCT USED FOR UNKNOWN INDICATION

REACTIONS (4)
  - Ureteric stenosis [Recovered/Resolved]
  - Duodenitis [Recovered/Resolved]
  - Gastrointestinal inflammation [Recovered/Resolved]
  - Duodenal perforation [Recovered/Resolved]
